FAERS Safety Report 16134000 (Version 2)
Quarter: 2019Q2

REPORT INFORMATION
  Report Type: Spontaneous
  Country: US (occurrence: US)
  Receive Date: 20190329
  Receipt Date: 20190403
  Transmission Date: 20190711
  Serious: Yes (Hospitalization, Other)
  Sender: FDA-Public Use
  Company Number: US-ELI_LILLY_AND_COMPANY-US201903011644

PATIENT
  Sex: Female

DRUGS (1)
  1. GALCANEZUMAB 120MG [Suspect]
     Active Substance: GALCANEZUMAB
     Indication: MIGRAINE PROPHYLAXIS
     Dosage: 240 MG, SINGLE
     Route: 058
     Dates: start: 20190304

REACTIONS (7)
  - Hypersensitivity [Recovering/Resolving]
  - Confusional state [Recovering/Resolving]
  - Skin exfoliation [Not Recovered/Not Resolved]
  - Rash erythematous [Recovering/Resolving]
  - Oral mucosal blistering [Unknown]
  - Throat irritation [Not Recovered/Not Resolved]
  - Mucosal disorder [Not Recovered/Not Resolved]
